FAERS Safety Report 7618908-2 (Version None)
Quarter: 2011Q3

REPORT INFORMATION
  Report Type: 
  Country: None (occurrence: None)
  Receive Date: 20110718
  Receipt Date: 20110710
  Transmission Date: 20111222
  Serious: Yes (Other)
  Sender: FDA-Public Use
  Company Number: IL-ABBOTT-11P-082-0837530-00

PATIENT
  Age: 19 Year
  Sex: Female
  Weight: 46 kg

DRUGS (3)
  1. PURINETHOL [Concomitant]
     Indication: CROHN'S DISEASE
  2. LEVOTHYROXINE SODIUM [Concomitant]
     Indication: HYPOTHYROIDISM
  3. HUMIRA [Suspect]
     Indication: CROHN'S DISEASE
     Route: 058
     Dates: start: 20110210

REACTIONS (4)
  - ABDOMINAL PAIN [None]
  - DIZZINESS [None]
  - ABDOMINAL DISTENSION [None]
  - LOSS OF CONSCIOUSNESS [None]
